FAERS Safety Report 8785649 (Version 1)
Quarter: 2012Q4

REPORT INFORMATION
  Report Type: Spontaneous
  Country: TR (occurrence: None)
  Receive Date: 20120831
  Receipt Date: 20120831
  Transmission Date: 20130627
  Serious: Yes (Hospitalization)
  Sender: FDA-Public Use
  Company Number: 2012P1054962

PATIENT
  Age: 42 Year
  Sex: Female

DRUGS (2)
  1. CEFUROXIME [Suspect]
     Indication: LIPOSUCTION
  2. NAPROXEN [Concomitant]

REACTIONS (4)
  - Thrombocytopenic purpura [None]
  - Haematuria [None]
  - Headache [None]
  - Nausea [None]
